FAERS Safety Report 7588977-7 (Version None)
Quarter: 2011Q3

REPORT INFORMATION
  Report Type: 
  Country: None (occurrence: None)
  Receive Date: 20110705
  Receipt Date: 20110627
  Transmission Date: 20111222
  Serious: Yes (Other)
  Sender: FDA-Public Use
  Company Number: PHHY2011GB56461

PATIENT
  Age: 79 Year
  Sex: Male

DRUGS (16)
  1. CODEINE SULFATE [Suspect]
     Indication: FEMUR FRACTURE
     Dosage: 60 MG, UNK
     Route: 048
     Dates: start: 20110609, end: 20110611
  2. AMITRIPTYLINE HCL [Concomitant]
     Dosage: UNK
  3. SERETIDE [Concomitant]
     Dosage: UNK
  4. SIMVASTATIN [Concomitant]
     Dosage: UNK
  5. WARFARIN SODIUM [Concomitant]
     Dosage: UNK
  6. TAMSULOSIN HCL [Concomitant]
     Dosage: UNK
  7. DIGOXIN [Concomitant]
     Dosage: UNK
  8. OMEPRAZOLE [Concomitant]
     Dosage: UNK
  9. ALENDRONIC ACID [Concomitant]
     Dosage: UNK
  10. ADCAL-D3 [Concomitant]
     Dosage: UNK
  11. FUROSEMIDE [Concomitant]
     Dosage: UNK
  12. METFORMIN HCL [Concomitant]
     Dosage: UNK
  13. ACETAMINOPHEN [Concomitant]
     Dosage: UNK
  14. HUMULIN I [Concomitant]
     Dosage: UNK
  15. HYDROCORTISONE [Concomitant]
     Dosage: UNK
  16. ALBUTEROL [Concomitant]
     Dosage: UNK

REACTIONS (1)
  - TOXICITY TO VARIOUS AGENTS [None]
